FAERS Safety Report 5469012-3 (Version None)
Quarter: 2007Q3

REPORT INFORMATION
  Report Type: 
  Country: None (occurrence: None)
  Receive Date: 20070820
  Receipt Date: 20070619
  Transmission Date: 20080115
  Serious: No
  Sender: FDA-Public Use
  Company Number: WAES 0706USA03295

PATIENT
  Age: 69 Year
  Sex: Female

DRUGS (6)
  1. JANUVIA [Suspect]
     Indication: DIABETES MELLITUS
     Dosage: 100 MG/DAILY/PO
     Route: 048
     Dates: start: 20070614
  2. MICARDIS [Concomitant]
  3. ZOCOR [Concomitant]
  4. THERAPY UNSPECIFIED [Concomitant]
  5. ASPIRIN [Concomitant]
  6. INSULIN [Concomitant]

REACTIONS (4)
  - ABDOMINAL PAIN UPPER [None]
  - DYSGEUSIA [None]
  - GASTROINTESTINAL MOTILITY DISORDER [None]
  - VOMITING [None]
